FAERS Safety Report 23377570 (Version 1)
Quarter: 2024Q1

REPORT INFORMATION
  Report Type: Spontaneous
  Country: CN (occurrence: CN)
  Receive Date: 20240108
  Receipt Date: 20240108
  Transmission Date: 20240410
  Serious: Yes (Hospitalization, Other)
  Sender: FDA-Public Use
  Company Number: CN-PFIZER INC-PV202300208661

PATIENT
  Age: 66 Year
  Sex: Female
  Weight: 53.8 kg

DRUGS (2)
  1. CRIZOTINIB [Suspect]
     Active Substance: CRIZOTINIB
     Indication: Lung neoplasm malignant
     Dosage: 250 MG, 2X/DAY
     Route: 048
     Dates: start: 20231122, end: 20231214
  2. ALECENSA [Suspect]
     Active Substance: ALECTINIB HYDROCHLORIDE
     Indication: Neoplasm
     Dosage: 600 MG, 2X/DAY
     Route: 048
     Dates: start: 20231215, end: 20231219

REACTIONS (6)
  - Blood creatine phosphokinase increased [Recovering/Resolving]
  - Alanine aminotransferase increased [Recovering/Resolving]
  - Aspartate aminotransferase increased [Recovering/Resolving]
  - Blood bilirubin increased [Recovering/Resolving]
  - Back pain [Recovering/Resolving]
  - Pain in extremity [Recovering/Resolving]

NARRATIVE: CASE EVENT DATE: 20231219
